FAERS Safety Report 17675047 (Version 3)
Quarter: 2020Q3

REPORT INFORMATION
  Report Type: Other
  Country: US (occurrence: US)
  Receive Date: 20200416
  Receipt Date: 20200820
  Transmission Date: 20201102
  Serious: Yes (Hospitalization, Other)
  Sender: FDA-Public Use
  Company Number: US-ROCHE-2581203

PATIENT
  Age: 43 Year
  Sex: Female
  Weight: 86.26 kg

DRUGS (13)
  1. OCREVUS [Suspect]
     Active Substance: OCRELIZUMAB
     Indication: RELAPSING MULTIPLE SCLEROSIS
     Dosage: HALF DOSES, ONGOING: NO
     Route: 065
     Dates: start: 20200302, end: 20200316
  2. TAMIFLU [Suspect]
     Active Substance: OSELTAMIVIR PHOSPHATE
     Indication: INFLUENZA
     Dosage: ONGOING: NO
     Route: 065
     Dates: start: 202002
  3. MAGNESIUM [Concomitant]
     Active Substance: MAGNESIUM
     Indication: MAGNESIUM DEFICIENCY
     Route: 048
     Dates: start: 2000
  4. PROAIR HFA [Concomitant]
     Active Substance: ALBUTEROL SULFATE
     Indication: WHEEZING
     Dates: start: 201902
  5. MELATONIN [Concomitant]
     Active Substance: MELATONIN
     Indication: INSOMNIA
     Route: 048
     Dates: start: 201805
  6. OCREVUS [Suspect]
     Active Substance: OCRELIZUMAB
     Indication: SECONDARY PROGRESSIVE MULTIPLE SCLEROSIS
     Dosage: 16/MAY/2019, 02/MAR/2020
     Route: 042
     Dates: start: 20190502
  7. CALCIUM [Concomitant]
     Active Substance: CALCIUM
     Indication: CALCIUM DEFICIENCY
     Route: 048
     Dates: start: 2000
  8. VITAMIN B6 [Concomitant]
     Active Substance: PYRIDOXINE HYDROCHLORIDE
     Indication: VITAMIN B6 DEFICIENCY
     Route: 048
     Dates: start: 202002
  9. REGLAN [Concomitant]
     Active Substance: METOCLOPRAMIDE HYDROCHLORIDE
     Indication: NAUSEA
     Dosage: AS REQUIRED
     Route: 048
     Dates: start: 2003
  10. OMEPRAZOLE. [Concomitant]
     Active Substance: OMEPRAZOLE
     Indication: GASTROOESOPHAGEAL REFLUX DISEASE
     Route: 048
     Dates: start: 2000
  11. PROAIR HFA [Concomitant]
     Active Substance: ALBUTEROL SULFATE
     Indication: WHEEZING
     Dosage: YES
     Dates: start: 201902
  12. TOPAMAX [Concomitant]
     Active Substance: TOPIRAMATE
     Indication: SEIZURE
     Route: 048
     Dates: start: 2013
  13. TYLENOL [Concomitant]
     Active Substance: ACETAMINOPHEN

REACTIONS (34)
  - Atrial fibrillation [Recovered/Resolved]
  - Rash [Not Recovered/Not Resolved]
  - Peripheral swelling [Recovered/Resolved]
  - Vision blurred [Not Recovered/Not Resolved]
  - Hypersensitivity [Recovered/Resolved]
  - Arthralgia [Unknown]
  - Loss of consciousness [Recovered/Resolved]
  - Swelling [Not Recovered/Not Resolved]
  - Muscle spasms [Not Recovered/Not Resolved]
  - Hypoaesthesia [Not Recovered/Not Resolved]
  - Lymphadenopathy [Not Recovered/Not Resolved]
  - Multiple sclerosis [Not Recovered/Not Resolved]
  - Dyspnoea [Not Recovered/Not Resolved]
  - Muscular weakness [Not Recovered/Not Resolved]
  - Influenza [Recovered/Resolved]
  - Speech disorder [Recovered/Resolved]
  - Hypoaesthesia oral [Not Recovered/Not Resolved]
  - Vulvovaginal burning sensation [Unknown]
  - Latent tuberculosis [Not Recovered/Not Resolved]
  - Dyspepsia [Not Recovered/Not Resolved]
  - Oral herpes [Not Recovered/Not Resolved]
  - Oropharyngeal pain [Not Recovered/Not Resolved]
  - Vulvovaginal pruritus [Unknown]
  - Parosmia [Not Recovered/Not Resolved]
  - Abdominal distension [Not Recovered/Not Resolved]
  - Cervical dysplasia [Recovered/Resolved]
  - Pain in extremity [Unknown]
  - Kidney infection [Not Recovered/Not Resolved]
  - Cystitis [Not Recovered/Not Resolved]
  - Pruritus [Not Recovered/Not Resolved]
  - Headache [Not Recovered/Not Resolved]
  - Pain [Not Recovered/Not Resolved]
  - Flushing [Recovered/Resolved]
  - Lip swelling [Not Recovered/Not Resolved]

NARRATIVE: CASE EVENT DATE: 20190502
